FAERS Safety Report 12659019 (Version 4)
Quarter: 2016Q3

REPORT INFORMATION
  Report Type: Spontaneous
  Country: US (occurrence: US)
  Receive Date: 20160816
  Receipt Date: 20160930
  Transmission Date: 20161109
  Serious: Yes (Other)
  Sender: FDA-Public Use
  Company Number: US-009507513-00060094

PATIENT
  Sex: Male

DRUGS (1)
  1. PROPECIA [Suspect]
     Active Substance: FINASTERIDE
     Indication: ALOPECIA
     Dosage: 1 MG, QD
     Route: 048
     Dates: start: 20010327, end: 2011

REACTIONS (16)
  - Ejaculation disorder [Unknown]
  - Sexual dysfunction [Unknown]
  - Depression [Unknown]
  - Hepatic function abnormal [Unknown]
  - Hormone level abnormal [Unknown]
  - Loss of libido [Unknown]
  - Self esteem decreased [Unknown]
  - Emotional distress [Unknown]
  - Penile size reduced [Unknown]
  - Sexual dysfunction [Not Recovered/Not Resolved]
  - Painful ejaculation [Unknown]
  - Brain injury [Unknown]
  - Psychotic disorder [Recovered/Resolved]
  - Erectile dysfunction [Not Recovered/Not Resolved]
  - Anxiety disorder [Unknown]
  - Testicular disorder [Unknown]

NARRATIVE: CASE EVENT DATE: 20010601
